FAERS Safety Report 22087413 (Version 1)
Quarter: 2023Q1

REPORT INFORMATION
  Report Type: Spontaneous
  Country: US (occurrence: US)
  Receive Date: 20230313
  Receipt Date: 20230313
  Transmission Date: 20230417
  Serious: No
  Sender: FDA-Public Use
  Company Number: US-CADILA HEALTHCARE LIMITED-US-ZYDUS-087997

PATIENT

DRUGS (1)
  1. MESALAMINE [Suspect]
     Active Substance: MESALAMINE
     Indication: Product used for unknown indication
     Dosage: , AS DIRECTED
     Route: 054
     Dates: start: 202301, end: 202302

REACTIONS (5)
  - Product substitution issue [Recovered/Resolved]
  - Proctalgia [Recovered/Resolved]
  - Intentional product use issue [Recovered/Resolved]
  - Therapy cessation [Not Recovered/Not Resolved]
  - Sleep disorder [Recovered/Resolved]

NARRATIVE: CASE EVENT DATE: 20230101
